FAERS Safety Report 19417858 (Version 3)
Quarter: 2021Q4

REPORT INFORMATION
  Report Type: Report from Study
  Country: GB (occurrence: GB)
  Receive Date: 20210615
  Receipt Date: 20211014
  Transmission Date: 20220303
  Serious: Yes (Hospitalization, Other)
  Sender: FDA-Public Use
  Company Number: None

PATIENT
  Age: 61 Year
  Sex: Female
  Weight: 100.6 kg

DRUGS (8)
  1. ZOLEDRONIC ACID [Suspect]
     Active Substance: ZOLEDRONIC ACID
     Indication: Metastases to bone
     Dosage: 4 MG, UNK
     Route: 041
     Dates: start: 20190225
  2. KISQALI [Suspect]
     Active Substance: RIBOCICLIB
     Indication: Breast cancer metastatic
     Dosage: 600 MG, QD
     Route: 048
     Dates: start: 20190129
  3. LEVOTHYROXINE [Concomitant]
     Active Substance: LEVOTHYROXINE
     Indication: Hypothyroidism
     Dosage: UNK
     Route: 065
     Dates: start: 19940201
  4. LEVOTHYROXINE SODIUM [Concomitant]
     Active Substance: LEVOTHYROXINE SODIUM
     Indication: Product used for unknown indication
     Dosage: 150 UG, QD (MORNING)
     Route: 048
     Dates: start: 20190227
  5. SENNA [Concomitant]
     Active Substance: SENNA LEAF\SENNOSIDES\SENNOSIDES A AND B
     Indication: Product used for unknown indication
     Dosage: 15 MG, QHS
     Route: 048
     Dates: start: 20190304
  6. CALCIUM CARBONATE\CHOLECALCIFEROL [Concomitant]
     Active Substance: CALCIUM CARBONATE\CHOLECALCIFEROL
     Indication: Prophylaxis
     Dosage: UNK
     Route: 065
     Dates: start: 19940201
  7. CARBOCYSTEINE [Concomitant]
     Active Substance: CARBOCYSTEINE
     Dosage: 750 MG, TID
     Route: 048
     Dates: start: 20190301
  8. LETROZOLE [Concomitant]
     Active Substance: LETROZOLE
     Indication: Product used for unknown indication
     Dosage: 2.5 MG, QD
     Route: 048
     Dates: start: 20190227

REACTIONS (41)
  - Alanine aminotransferase increased [Unknown]
  - Abdominal pain [Not Recovered/Not Resolved]
  - Lymphocyte count decreased [Unknown]
  - Monocyte count decreased [Unknown]
  - Adjusted calcium decreased [Unknown]
  - Blood alkaline phosphatase increased [Unknown]
  - Alopecia [Not Recovered/Not Resolved]
  - Decreased appetite [Not Recovered/Not Resolved]
  - Anxiety [Not Recovered/Not Resolved]
  - Arthralgia [Not Recovered/Not Resolved]
  - Back pain [Not Recovered/Not Resolved]
  - Pain in extremity [Recovered/Resolved]
  - Erythema [Recovered/Resolved]
  - Peripheral swelling [Recovered/Resolved]
  - Constipation [Not Recovered/Not Resolved]
  - Skin reaction [Unknown]
  - Diarrhoea [Recovered/Resolved]
  - Dizziness [Not Recovered/Not Resolved]
  - Fatigue [Not Recovered/Not Resolved]
  - Pyrexia [Recovered/Resolved]
  - Gastrooesophageal reflux disease [Not Recovered/Not Resolved]
  - Haematocrit decreased [Unknown]
  - Haemoglobin decreased [Unknown]
  - Headache [Recovering/Resolving]
  - Hot flush [Not Recovered/Not Resolved]
  - Hypophosphataemia [Recovered/Resolved]
  - Blood phosphorus decreased [Unknown]
  - Insomnia [Not Recovered/Not Resolved]
  - Platelet count decreased [Recovered/Resolved]
  - Blood magnesium decreased [Unknown]
  - Myalgia [Not Recovered/Not Resolved]
  - Nausea [Not Recovered/Not Resolved]
  - Neutropenia [Recovered/Resolved]
  - Oedema peripheral [Not Recovered/Not Resolved]
  - Palpitations [Recovering/Resolving]
  - Pruritus [Not Recovered/Not Resolved]
  - Chills [Recovered/Resolved]
  - Dyspnoea exertional [Recovered/Resolved]
  - Urinary tract infection [Recovered/Resolved]
  - Vomiting [Recovered/Resolved]
  - White blood cell count decreased [Unknown]

NARRATIVE: CASE EVENT DATE: 20190201
